FAERS Safety Report 5088895-2 (Version None)
Quarter: 2006Q3

REPORT INFORMATION
  Report Type: 
  Country: None (occurrence: None)
  Receive Date: 20060824
  Receipt Date: 20060824
  Transmission Date: 20061208
  Serious: Yes (Hospitalization)
  Sender: FDA-Public Use
  Company Number: None

PATIENT

DRUGS (1)
  1. IRONOTECAN [Suspect]

REACTIONS (3)
  - ADVERSE DRUG REACTION [None]
  - DIARRHOEA [None]
  - WEIGHT DECREASED [None]
